FAERS Safety Report 18729484 (Version 1)
Quarter: 2021Q1

REPORT INFORMATION
  Report Type: Spontaneous
  Country: US (occurrence: US)
  Receive Date: 20210111
  Receipt Date: 20210111
  Transmission Date: 20210419
  Serious: No
  Sender: FDA-Public Use
  Company Number: None

PATIENT
  Age: 83 Year
  Sex: Male

DRUGS (1)
  1. IOHEXOL (IOHEXOL 388.3MG/ML INJ) [Suspect]
     Active Substance: IOHEXOL
     Route: 042
     Dates: start: 20201124, end: 20201124

REACTIONS (3)
  - Respiratory depression [None]
  - Wheezing [None]
  - Cough [None]

NARRATIVE: CASE EVENT DATE: 20201124
